FAERS Safety Report 7504694-3 (Version None)
Quarter: 2011Q2

REPORT INFORMATION
  Report Type: 
  Country: None (occurrence: None)
  Receive Date: 20110525
  Receipt Date: 20110518
  Transmission Date: 20111010
  Serious: Yes (Hospitalization, Other)
  Sender: FDA-Public Use
  Company Number: US-MERCK-1009USA05574

PATIENT
  Age: 61 Year
  Sex: Female
  Weight: 44 kg

DRUGS (6)
  1. CALCIUM CARBONATE [Concomitant]
     Route: 065
  2. FOSAMAX PLUS D [Suspect]
     Indication: OSTEOPOROSIS
     Route: 048
     Dates: start: 20061101
  3. FOSAMAX [Suspect]
     Route: 048
     Dates: start: 19950101, end: 20010101
  4. PREMARIN [Concomitant]
     Route: 065
     Dates: start: 19900101, end: 20030401
  5. PREMARIN [Concomitant]
     Route: 065
     Dates: start: 20030401
  6. FOSAMAX [Suspect]
     Indication: OSTEOPOROSIS
     Route: 048
     Dates: start: 20010101, end: 20061101

REACTIONS (29)
  - ARTHROPATHY [None]
  - FIBROCYSTIC BREAST DISEASE [None]
  - NODAL OSTEOARTHRITIS [None]
  - ATROPHIC VULVOVAGINITIS [None]
  - GASTRITIS [None]
  - BACK PAIN [None]
  - RECTAL POLYP [None]
  - HYPERTENSION [None]
  - HAEMORRHOIDS [None]
  - OSTEOARTHRITIS [None]
  - DENTAL NECROSIS [None]
  - RESORPTION BONE INCREASED [None]
  - PULPITIS DENTAL [None]
  - VAGINAL DISORDER [None]
  - TOOTH DISORDER [None]
  - TOOTH FRACTURE [None]
  - LOW TURNOVER OSTEOPATHY [None]
  - HYPERCALCAEMIA [None]
  - BLOOD CHOLESTEROL INCREASED [None]
  - ABDOMINAL PAIN [None]
  - APICAL GRANULOMA [None]
  - DUODENITIS [None]
  - FEMUR FRACTURE [None]
  - BRONCHITIS [None]
  - PERIODONTITIS [None]
  - BONE PAIN [None]
  - PAIN IN EXTREMITY [None]
  - OSTEOPENIA [None]
  - DIVERTICULUM [None]
